FAERS Safety Report 6596658-1 (Version None)
Quarter: 2010Q1

REPORT INFORMATION
  Report Type: 
  Country: None (occurrence: None)
  Receive Date: 20100223
  Receipt Date: 20100211
  Transmission Date: 20100710
  Serious: Yes (Other)
  Sender: FDA-Public Use
  Company Number: US-BAYER-201013849NA

PATIENT
  Age: 36 Year
  Sex: Female
  Weight: 103 kg

DRUGS (1)
  1. EOVIST [Suspect]
     Indication: NUCLEAR MAGNETIC RESONANCE IMAGING
     Dosage: TOTAL DAILY DOSE: 9 ML
     Route: 042
     Dates: start: 20100211, end: 20100211

REACTIONS (5)
  - BLOOD PRESSURE INCREASED [None]
  - DYSPNOEA [None]
  - PRURITUS [None]
  - URTICARIA [None]
  - VOMITING [None]
